FAERS Safety Report 19206903 (Version 2)
Quarter: 2021Q2

REPORT INFORMATION
  Report Type: Spontaneous
  Country: US (occurrence: US)
  Receive Date: 20210501
  Receipt Date: 20210520
  Transmission Date: 20210717
  Serious: Yes (Hospitalization, Other)
  Sender: FDA-Public Use
  Company Number: US-TEVA-2021-US-1905217

PATIENT
  Age: 64 Year
  Sex: Female

DRUGS (1)
  1. DILTIAZEM TEVA [Suspect]
     Active Substance: DILTIAZEM
     Dosage: 2?3 YEARS
     Route: 065

REACTIONS (6)
  - Renal failure [Unknown]
  - Magnesium deficiency [Not Recovered/Not Resolved]
  - Pollakiuria [Recovering/Resolving]
  - Blood pressure increased [Unknown]
  - Vitamin D deficiency [Unknown]
  - Protein deficiency [Not Recovered/Not Resolved]
